FAERS Safety Report 24532995 (Version 1)
Quarter: 2024Q4

REPORT INFORMATION
  Report Type: Spontaneous
  Country: US (occurrence: None)
  Receive Date: 20241020
  Receipt Date: 20241020
  Transmission Date: 20250115
  Serious: Yes (Other)
  Sender: Public
  Company Number: None

PATIENT
  Age: 72 Year
  Sex: Female
  Weight: 53.55 kg

DRUGS (7)
  1. PAXLOVID [Suspect]
     Active Substance: NIRMATRELVIR\RITONAVIR
     Indication: COVID-19
     Dosage: OTHER QUANTITY : 3 TABLET(S);?FREQUENCY : TWICE A DAY;?
     Route: 048
     Dates: start: 20241017, end: 20241019
  2. LEVOTHYROXIN [Concomitant]
  3. SYSTANE BALANCE [Concomitant]
     Active Substance: PROPYLENE GLYCOL
  4. Probiotic [Concomitant]
  5. VIT D [Concomitant]
  6. VITAMINS [Concomitant]
     Active Substance: VITAMINS
  7. STOOL SOFTENER (DOCUSATE) [Concomitant]
     Active Substance: DOCUSATE

REACTIONS (7)
  - Dysgeusia [None]
  - Malaise [None]
  - Faeces discoloured [None]
  - Insomnia [None]
  - Retching [None]
  - Vomiting [None]
  - Therapy cessation [None]

NARRATIVE: CASE EVENT DATE: 20241018
